FAERS Safety Report 8228282-9 (Version None)
Quarter: 2012Q1

REPORT INFORMATION
  Report Type: 
  Country: None (occurrence: None)
  Receive Date: 20120322
  Receipt Date: 20111014
  Transmission Date: 20120608
  Serious: Yes (Other)
  Sender: FDA-Public Use
  Company Number: US-BRISTOL-MYERS SQUIBB COMPANY-16162950

PATIENT
  Age: 63 Year
  Sex: Female

DRUGS (1)
  1. ERBITUX [Suspect]
     Indication: COLORECTAL CANCER
     Dosage: LOADING DOSE: 400 MG/M2 AND THEN WEEKLY DOSE: 250MG/M2.

REACTIONS (2)
  - NEOPLASM MALIGNANT [None]
  - DRUG DOSE OMISSION [None]
